FAERS Safety Report 18126271 (Version 1)
Quarter: 2020Q3

REPORT INFORMATION
  Report Type: Spontaneous
  Country: US (occurrence: US)
  Receive Date: 20200808
  Receipt Date: 20200808
  Transmission Date: 20201103
  Serious: No
  Sender: FDA-Public Use
  Company Number: US-LEADINGPHARMA-US-2020LEASPO00129

PATIENT
  Age: 69 Year
  Sex: Female
  Weight: 190 kg

DRUGS (2)
  1. IMIPRAMINE HCL TABLETS USP [Suspect]
     Active Substance: IMIPRAMINE HYDROCHLORIDE
     Indication: ANXIETY
     Route: 048
     Dates: end: 20200804
  2. IMIPRAMINE HCL TABLETS USP [Suspect]
     Active Substance: IMIPRAMINE HYDROCHLORIDE
     Indication: ABDOMINAL DISCOMFORT

REACTIONS (14)
  - Tongue erythema [Not Recovered/Not Resolved]
  - Pollakiuria [Recovering/Resolving]
  - Extra dose administered [None]
  - Tongue dry [Not Recovered/Not Resolved]
  - Dry skin [Recovering/Resolving]
  - Product use in unapproved indication [None]
  - Product substitution issue [None]
  - Dysuria [Recovering/Resolving]
  - Dry throat [Not Recovered/Not Resolved]
  - Chest pain [Recovering/Resolving]
  - Drug ineffective for unapproved indication [None]
  - Initial insomnia [Not Recovered/Not Resolved]
  - Intentional dose omission [None]
  - Abdominal discomfort [Recovering/Resolving]
